FAERS Safety Report 24639522 (Version 1)
Quarter: 2024Q4

REPORT INFORMATION
  Report Type: Spontaneous
  Country: SE (occurrence: SE)
  Receive Date: 20241119
  Receipt Date: 20241119
  Transmission Date: 20250114
  Serious: Yes (Hospitalization)
  Sender: ABBVIE
  Company Number: None

PATIENT
  Sex: Male

DRUGS (1)
  1. ESCITALOPRAM [Suspect]
     Active Substance: ESCITALOPRAM OXALATE
     Indication: Maternal exposure timing unspecified
     Route: 064

REACTIONS (4)
  - Foetal exposure during pregnancy [Unknown]
  - Tremor neonatal [Unknown]
  - Neonatal seizure [Unknown]
  - Muscle twitching [Unknown]

NARRATIVE: CASE EVENT DATE: 20240829
